FAERS Safety Report 9114729 (Version 2)
Quarter: 2013Q3

REPORT INFORMATION
  Report Type: Spontaneous
  Country: NZ (occurrence: None)
  Receive Date: 20130128
  Receipt Date: 20130912
  Transmission Date: 20140515
  Serious: Yes (Other)
  Sender: FDA-Public Use
  Company Number: AG-2013-0084

PATIENT
  Age: 77 Year
  Sex: Male
  Weight: 64.5 kg

DRUGS (8)
  1. CHLORAMBUCIL [Suspect]
     Indication: CHRONIC LYMPHOCYTIC LEUKAEMIA
     Dosage: 48 MILLIGRAM  (UNKNOWN, DAY 1 + DAY 15)
     Dates: start: 20120319, end: 20120416
  2. LANSOPRAZOLE [Concomitant]
  3. NAPROXEN [Concomitant]
  4. AMITRIPTYLINE [Concomitant]
  5. TERAZOSIN [Concomitant]
  6. METACLOPRAMIDE [Concomitant]
  7. ALLOPURINOL [Concomitant]
  8. FLUARIX [Concomitant]

REACTIONS (3)
  - Squamous cell carcinoma [None]
  - Skin cancer [None]
  - Basal cell carcinoma [None]
